FAERS Safety Report 13886156 (Version 2)
Quarter: 2017Q3

REPORT INFORMATION
  Report Type: Spontaneous
  Country: US (occurrence: US)
  Receive Date: 20170821
  Receipt Date: 20170821
  Transmission Date: 20171127
  Serious: Yes (Life-Threatening, Other)
  Sender: FDA-Public Use
  Company Number: US-BRISTOL-MYERS SQUIBB COMPANY-BMS-2017-074211

PATIENT
  Sex: Female

DRUGS (1)
  1. OPDIVO [Suspect]
     Active Substance: NIVOLUMAB
     Indication: PRODUCT USED FOR UNKNOWN INDICATION
     Route: 065

REACTIONS (8)
  - Pneumonitis [Unknown]
  - Pleural effusion [Unknown]
  - Hypertension [Unknown]
  - Obstructive airways disorder [Unknown]
  - Pancreatitis [Unknown]
  - Nephritis [Unknown]
  - Hepatitis [Unknown]
  - Cholelithiasis [Unknown]
